FAERS Safety Report 4474895-X (Version None)
Quarter: 2004Q4

REPORT INFORMATION
  Report Type: 
  Country: None (occurrence: None)
  Receive Date: 20041014
  Receipt Date: 20041008
  Transmission Date: 20050328
  Serious: Yes (Hospitalization)
  Sender: FDA-Public Use
  Company Number: US-MERCK-0410USA01466

PATIENT
  Age: 70 Year
  Sex: Female

DRUGS (7)
  1. ASPIRIN [Concomitant]
     Route: 065
  2. LIPITOR [Concomitant]
     Route: 065
  3. GLIPIZIDE [Concomitant]
     Route: 065
  4. TOPROL-XL [Concomitant]
     Route: 048
  5. PAXIL [Concomitant]
     Route: 065
  6. VIOXX [Suspect]
     Route: 048
  7. VITAMIN E [Concomitant]
     Route: 065

REACTIONS (2)
  - CEREBROVASCULAR ACCIDENT [None]
  - DEPRESSION [None]
